FAERS Safety Report 5404670-0 (Version None)
Quarter: 2007Q3

REPORT INFORMATION
  Report Type: 
  Country: None (occurrence: None)
  Receive Date: 20070731
  Receipt Date: 20070716
  Transmission Date: 20080115
  Serious: Yes (Other)
  Sender: FDA-Public Use
  Company Number: GB-1163607

PATIENT
  Age: 5 Month
  Sex: Female

DRUGS (1)
  1. APRACLONIDINE [Suspect]
     Indication: HORNER'S SYNDROME
     Dosage: EYE DROPS, SOLUTION 1 GTT OU OPHTHALMIC
     Route: 047

REACTIONS (8)
  - BLOOD PRESSURE INCREASED [None]
  - BRADYCARDIA [None]
  - HYPOVENTILATION [None]
  - LETHARGY [None]
  - OXYGEN SATURATION DECREASED [None]
  - PALLOR [None]
  - SOMNOLENCE [None]
  - UNRESPONSIVE TO STIMULI [None]
